FAERS Safety Report 11334935 (Version 1)
Quarter: 2015Q3

REPORT INFORMATION
  Report Type: Spontaneous
  Country: US (occurrence: None)
  Receive Date: 20150731
  Receipt Date: 20150731
  Transmission Date: 20151125
  Serious: No
  Sender: FDA-Public Use
  Company Number: None

PATIENT
  Age: 35 Year
  Sex: Female

DRUGS (1)
  1. HUMIRA [Suspect]
     Active Substance: ADALIMUMAB
     Indication: PSORIASIS
     Dosage: INJECT 1 PEN
     Route: 058

REACTIONS (3)
  - Injection site pain [None]
  - Injection site pruritus [None]
  - Injection site mass [None]

NARRATIVE: CASE EVENT DATE: 20150628
